FAERS Safety Report 19677406 (Version 1)
Quarter: 2021Q3

REPORT INFORMATION
  Report Type: Spontaneous
  Country: IN (occurrence: IN)
  Receive Date: 20210809
  Receipt Date: 20210809
  Transmission Date: 20211014
  Serious: Yes (Hospitalization)
  Sender: FDA-Public Use
  Company Number: IN-LUPIN LIMITED-2021-14182

PATIENT
  Age: 2 Year
  Sex: Male

DRUGS (5)
  1. LEVETIRACETAM. [Suspect]
     Active Substance: LEVETIRACETAM
     Indication: SUBACUTE SCLEROSING PANENCEPHALITIS
     Dosage: UNK
     Route: 065
  2. ISOPRINOSINE [Suspect]
     Active Substance: INOSINE PRANOBEX
     Indication: SUBACUTE SCLEROSING PANENCEPHALITIS
     Dosage: UNK
     Route: 065
  3. SODIUM VALPROATE [Suspect]
     Active Substance: VALPROATE SODIUM
     Indication: SUBACUTE SCLEROSING PANENCEPHALITIS
     Dosage: UNK
     Route: 065
  4. CLOBAZAM. [Suspect]
     Active Substance: CLOBAZAM
     Indication: SUBACUTE SCLEROSING PANENCEPHALITIS
     Dosage: UNK
     Route: 065
  5. TOPIRAMAT [Suspect]
     Active Substance: TOPIRAMATE
     Indication: SUBACUTE SCLEROSING PANENCEPHALITIS
     Dosage: UNK
     Route: 065

REACTIONS (2)
  - Drug ineffective for unapproved indication [Unknown]
  - Off label use [Unknown]
